FAERS Safety Report 8814191 (Version 1)
Quarter: 2012Q4

REPORT INFORMATION
  Report Type: Spontaneous
  Country: US (occurrence: None)
  Receive Date: 20120926
  Receipt Date: 20120926
  Transmission Date: 20130627
  Serious: Yes (Life-Threatening, Other)
  Sender: FDA-Public Use
  Company Number: None

PATIENT
  Age: 58 Year
  Sex: Male
  Weight: 77.11 kg

DRUGS (1)
  1. PAROXETINE [Suspect]
     Indication: STRESS
     Dosage: 1 tablet Once daily
     Dates: start: 20120629, end: 20120925

REACTIONS (5)
  - Drug hypersensitivity [None]
  - Malaise [None]
  - Feeling abnormal [None]
  - Dizziness [None]
  - Mood swings [None]
